FAERS Safety Report 11785297 (Version 3)
Quarter: 2016Q3

REPORT INFORMATION
  Report Type: Report from Study
  Country: BR (occurrence: BR)
  Receive Date: 20151130
  Receipt Date: 20160722
  Transmission Date: 20161109
  Serious: Yes (Other)
  Sender: FDA-Public Use
  Company Number: PHHY2015BR155519

PATIENT
  Sex: Female
  Weight: 66 kg

DRUGS (1)
  1. DIOVAN HCT [Suspect]
     Active Substance: HYDROCHLOROTHIAZIDE\VALSARTAN
     Indication: HYPERTENSION
     Dosage: 1 DF (HYDROCHLOROTHIAZIDE 12.5 MG, VALSARTAN 80 MG), QD
     Route: 048

REACTIONS (10)
  - Tendon injury [Unknown]
  - Panic disorder [Recovered/Resolved]
  - Meniscus injury [Unknown]
  - Dyspnoea [Recovering/Resolving]
  - Anxiety [Not Recovered/Not Resolved]
  - Depression [Recovered/Resolved]
  - Malaise [Unknown]
  - Fall [Unknown]
  - Speech disorder [Recovering/Resolving]
  - Bronchiolitis [Recovering/Resolving]
